FAERS Safety Report 4523250-2 (Version None)
Quarter: 2004Q4

REPORT INFORMATION
  Report Type: 
  Country: None (occurrence: None)
  Receive Date: 20041209
  Receipt Date: 20041209
  Transmission Date: 20050328
  Serious: No
  Sender: FDA-Public Use
  Company Number: None

PATIENT
  Age: 34 Year
  Sex: Male
  Weight: 75 kg

DRUGS (8)
  1. VORICONAZOLE [Suspect]
     Indication: FEBRILE NEUTROPENIA
     Dosage: 450 MG IV Q 12 HRS
     Route: 042
     Dates: start: 20041124, end: 20041125
  2. VORICONAZOLE [Suspect]
     Dosage: 300 MG IV Q 12 HR
     Route: 042
     Dates: start: 20041126, end: 20041126
  3. AZITHROMYCIN [Concomitant]
  4. CEFEPIME [Concomitant]
  5. TRIMETHOPRIM + SULFAMETHOXAZOLE [Concomitant]
  6. ATORVASTATIN [Concomitant]
  7. LORAZEPAM [Concomitant]
  8. METOPROLOL [Concomitant]

REACTIONS (1)
  - HALLUCINATIONS, MIXED [None]
